FAERS Safety Report 13225562 (Version 1)
Quarter: 2017Q1

REPORT INFORMATION
  Report Type: Spontaneous
  Country: US (occurrence: US)
  Receive Date: 20170211
  Receipt Date: 20170211
  Transmission Date: 20170428
  Serious: Yes (Hospitalization)
  Sender: FDA-Public Use
  Company Number: None

PATIENT
  Age: 61 Year
  Sex: Female
  Weight: 67.73 kg

DRUGS (1)
  1. DOXIL [Suspect]
     Active Substance: DOXORUBICIN HYDROCHLORIDE
     Dates: end: 20170202

REACTIONS (4)
  - Pleural effusion [None]
  - Dyspnoea [None]
  - Back pain [None]
  - Musculoskeletal pain [None]

NARRATIVE: CASE EVENT DATE: 20170204
